FAERS Safety Report 5074441-6 (Version None)
Quarter: 2006Q3

REPORT INFORMATION
  Report Type: 
  Country: None (occurrence: None)
  Receive Date: 20060804
  Receipt Date: 20060720
  Transmission Date: 20061208
  Serious: No
  Sender: FDA-Public Use
  Company Number: US017251

PATIENT
  Age: 20 Month
  Sex: Male

DRUGS (1)
  1. ACTIQ [Suspect]
     Dosage: 200 UG ONCE BUCCAL
     Route: 002
     Dates: start: 20041204, end: 20041204

REACTIONS (2)
  - ACCIDENTAL DRUG INTAKE BY CHILD [None]
  - MIOSIS [None]
